FAERS Safety Report 7809287-6 (Version None)
Quarter: 2011Q4

REPORT INFORMATION
  Report Type: 
  Country: None (occurrence: None)
  Receive Date: 20111012
  Receipt Date: 20111010
  Transmission Date: 20120403
  Serious: Yes (Other)
  Sender: FDA-Public Use
  Company Number: BR-ABBOTT-09P-020-0604035-00

PATIENT
  Sex: Female
  Weight: 71 kg

DRUGS (4)
  1. PRELONE [Concomitant]
     Indication: RHEUMATOID ARTHRITIS
     Route: 048
     Dates: start: 20060101
  2. HUMIRA [Suspect]
     Route: 058
  3. HUMIRA [Suspect]
     Indication: RHEUMATOID ARTHRITIS
     Route: 058
     Dates: start: 20080101, end: 20101206
  4. ARAVA [Concomitant]
     Indication: RHEUMATOID ARTHRITIS
     Route: 048
     Dates: start: 20060101

REACTIONS (8)
  - SPINAL FRACTURE [None]
  - LIGAMENT SPRAIN [None]
  - BONE PAIN [None]
  - FALL [None]
  - NERVE COMPRESSION [None]
  - PAIN IN EXTREMITY [None]
  - BACK PAIN [None]
  - PAIN [None]
